FAERS Safety Report 6235879-4 (Version None)
Quarter: 2009Q2

REPORT INFORMATION
  Report Type: 
  Country: None (occurrence: None)
  Receive Date: 20090617
  Receipt Date: 20090617
  Transmission Date: 20091009
  Serious: Yes (Hospitalization)
  Sender: FDA-Public Use
  Company Number: None

PATIENT
  Sex: Male
  Weight: 69 kg

DRUGS (7)
  1. AVASTIN [Suspect]
     Indication: PROSTATE CANCER
     Dosage: ONCE Q 2 WEEKS, IV
     Route: 042
     Dates: start: 20090526, end: 20090609
  2. TEMSIROLIMUS, 20MG [Suspect]
     Indication: PROSTATE CANCER
     Dosage: ONCE EVERY WEEK, IV
     Route: 042
     Dates: start: 20090519, end: 20090609
  3. ZOFRAN [Concomitant]
  4. ROXICET [Concomitant]
  5. NORVASC [Concomitant]
  6. PRILOSEC [Concomitant]
  7. LISINOPRIL [Concomitant]

REACTIONS (2)
  - CONSTIPATION [None]
  - DEHYDRATION [None]
